FAERS Safety Report 5868552-2 (Version None)
Quarter: 2008Q3

REPORT INFORMATION
  Report Type: 
  Country: None (occurrence: None)
  Receive Date: 20080902
  Receipt Date: 20080902
  Transmission Date: 20090109
  Serious: Yes (Other)
  Sender: FDA-Public Use
  Company Number: None

PATIENT
  Age: 26 Year
  Sex: Female
  Weight: 83.9154 kg

DRUGS (1)
  1. CHANTIX [Suspect]
     Indication: SMOKING CESSATION THERAPY

REACTIONS (7)
  - ACNE [None]
  - ALOPECIA [None]
  - DEPRESSION [None]
  - INSOMNIA [None]
  - OILY SKIN [None]
  - SKIN DISORDER [None]
  - WEIGHT INCREASED [None]
